FAERS Safety Report 8853228 (Version 2)
Quarter: 2012Q4

REPORT INFORMATION
  Report Type: 
  Country: US (occurrence: US)
  Receive Date: 20121023
  Receipt Date: 20121212
  Transmission Date: 20130627
  Serious: Yes (Other)
  Sender: FDA-Public Use
  Company Number: US-AMGEN-USASP2012065916

PATIENT
  Age: 55 Year
  Sex: Female
  Weight: 88.89 kg

DRUGS (4)
  1. ENBREL [Suspect]
     Indication: RHEUMATOID ARTHRITIS
     Dosage: 50 mg, qwk
     Route: 058
     Dates: start: 200911
  2. METHOTREXATE [Concomitant]
     Dosage: UNK
     Dates: end: 201011
  3. CYMBALTA [Concomitant]
     Dosage: 30 mg, UNK
     Route: 048
     Dates: start: 200802
  4. ARAVA [Concomitant]
     Dosage: UNK

REACTIONS (4)
  - Carcinoid tumour [Unknown]
  - Pleurisy [Recovered/Resolved]
  - Fatigue [Unknown]
  - Nausea [Unknown]
